FAERS Safety Report 7638118-2 (Version None)
Quarter: 2011Q3

REPORT INFORMATION
  Report Type: 
  Country: None (occurrence: None)
  Receive Date: 20110727
  Receipt Date: 20110713
  Transmission Date: 20111222
  Serious: Yes (Other)
  Sender: FDA-Public Use
  Company Number: US-RANBAXY-2011US-46088

PATIENT

DRUGS (2)
  1. LISINOPRIL [Suspect]
     Indication: BLOOD PRESSURE
     Dosage: 5 MG, IN THE MORNING
     Route: 065
  2. CETIRIZINE HCL [Suspect]
     Indication: HYPERSENSITIVITY
     Dosage: 10 MG, ONE TABLET IN THE EVENING
     Route: 065

REACTIONS (4)
  - DIZZINESS [None]
  - GAIT DISTURBANCE [None]
  - HYPOACUSIS [None]
  - SOMNOLENCE [None]
